FAERS Safety Report 17989202 (Version 1)
Quarter: 2020Q3

REPORT INFORMATION
  Report Type: Report from Study
  Country: CO (occurrence: CO)
  Receive Date: 20200707
  Receipt Date: 20200707
  Transmission Date: 20201103
  Serious: Yes (Hospitalization, Disabling, Other)
  Sender: FDA-Public Use
  Company Number: CO-ACTELION-A-CH2020-206910

PATIENT
  Sex: Female

DRUGS (4)
  1. TRACLEER [Suspect]
     Active Substance: BOSENTAN
     Dosage: UNK
     Route: 048
     Dates: end: 20200407
  2. SILDENAFIL. [Suspect]
     Active Substance: SILDENAFIL
     Dosage: 20 UNK
     Route: 065
  3. TRACLEER [Suspect]
     Active Substance: BOSENTAN
     Indication: PULMONARY ARTERIAL HYPERTENSION
     Dosage: 125 MG, BID
     Route: 048
  4. SILDENAFIL. [Suspect]
     Active Substance: SILDENAFIL
     Indication: PULMONARY ARTERIAL HYPERTENSION
     Dosage: 50 MG
     Route: 065

REACTIONS (7)
  - Pulmonary arterial pressure abnormal [Unknown]
  - Coronary artery occlusion [Not Recovered/Not Resolved]
  - Coronary arterial stent insertion [Not Recovered/Not Resolved]
  - Choking sensation [Not Recovered/Not Resolved]
  - Chest pain [Not Recovered/Not Resolved]
  - Coronary artery disease [Unknown]
  - Catheterisation cardiac [Unknown]

NARRATIVE: CASE EVENT DATE: 2019
